FAERS Safety Report 11829576 (Version 1)
Quarter: 2015Q4

REPORT INFORMATION
  Report Type: Spontaneous
  Country: US (occurrence: US)
  Receive Date: 20151212
  Receipt Date: 20151212
  Transmission Date: 20160305
  Serious: No
  Sender: FDA-Public Use
  Company Number: US-ZYDUS-006379

PATIENT
  Age: 13 Year
  Sex: Female

DRUGS (2)
  1. AMFETAMINE ASPARTATE/AMFETAMINE SULFATE/DEXAMFETAMINE SACCHARATE/DEXAMFETAMINE SULFATE [Concomitant]
     Dosage: AS NEEDED
  2. RISPERIDONE. [Suspect]
     Active Substance: RISPERIDONE
     Indication: ABNORMAL BEHAVIOUR
     Dosage: 1-2 MG
     Route: 048
     Dates: start: 20131126

REACTIONS (2)
  - Drug ineffective [Unknown]
  - Self-injurious ideation [Unknown]

NARRATIVE: CASE EVENT DATE: 201411
